FAERS Safety Report 15363806 (Version 1)
Quarter: 2018Q3

REPORT INFORMATION
  Report Type: Report from Study
  Country: None (occurrence: US)
  Receive Date: 20180908
  Receipt Date: 20180908
  Transmission Date: 20181010
  Serious: Yes (Hospitalization)
  Sender: FDA-Public Use
  Company Number: US-ABBVIE-18K-163-2477757-00

PATIENT
  Age: 48 Year
  Sex: Female

DRUGS (1)
  1. HUMIRA [Suspect]
     Active Substance: ADALIMUMAB
     Indication: PRODUCT USED FOR UNKNOWN INDICATION
     Route: 058
     Dates: start: 20180524, end: 20180821

REACTIONS (4)
  - Dysphagia [Unknown]
  - Urinary tract infection [Unknown]
  - Immunodeficiency [Unknown]
  - Oral infection [Unknown]

NARRATIVE: CASE EVENT DATE: 20180820
